FAERS Safety Report 5393162-3 (Version None)
Quarter: 2007Q3

REPORT INFORMATION
  Report Type: 
  Country: None (occurrence: None)
  Receive Date: 20070718
  Receipt Date: 20070126
  Transmission Date: 20080115
  Serious: Yes (Death, Other)
  Sender: FDA-Public Use
  Company Number: 2006122866

PATIENT
  Age: 51 Year
  Sex: Male
  Weight: 119.8 kg

DRUGS (3)
  1. CELEBREX [Suspect]
     Indication: BACK PAIN
     Dosage: 200 MG (200 MG, 1 IN 1 D), ORAL
     Route: 048
     Dates: start: 19990101, end: 19991219
  2. CELEBREX [Suspect]
     Indication: PAIN IN EXTREMITY
     Dosage: 200 MG (200 MG, 1 IN 1 D), ORAL
     Route: 048
     Dates: start: 19990101, end: 19991219
  3. VIOXX [Suspect]
     Dosage: ORAL
     Route: 048
     Dates: start: 19991230, end: 20000103

REACTIONS (1)
  - MYOCARDIAL INFARCTION [None]
